FAERS Safety Report 14069365 (Version 2)
Quarter: 2017Q4

REPORT INFORMATION
  Report Type: Spontaneous
  Country: CA (occurrence: CA)
  Receive Date: 20171010
  Receipt Date: 20171016
  Transmission Date: 20180321
  Serious: Yes (Other)
  Sender: FDA-Public Use
  Company Number: CA-RECKITT BENCKISER HEALTHCARE INT LIMITED-RB-96099-2017

PATIENT
  Sex: Male

DRUGS (1)
  1. CEPACOL EXTRA STRENGTH CHERRY SUCROSE FREE [Suspect]
     Active Substance: BENZOCAINE\MENTHOL
     Indication: PRODUCT USED FOR UNKNOWN INDICATION
     Dosage: UNK,  8 LOZENGES 1ST USE / 2 LOZENGES
     Route: 065
     Dates: start: 20161225

REACTIONS (6)
  - Abdominal distension [Recovered/Resolved]
  - Dyspnoea [Recovered/Resolved]
  - Flatulence [Recovered/Resolved]
  - Headache [Recovered/Resolved]
  - Hypersensitivity [Recovered/Resolved]
  - Product label confusion [Recovered/Resolved]
